FAERS Safety Report 7712343-4 (Version None)
Quarter: 2011Q3

REPORT INFORMATION
  Report Type: 
  Country: None (occurrence: None)
  Receive Date: 20110826
  Receipt Date: 20110819
  Transmission Date: 20111222
  Serious: Yes (Hospitalization)
  Sender: FDA-Public Use
  Company Number: GB-ROCHE-784013

PATIENT
  Sex: Female
  Weight: 80 kg

DRUGS (15)
  1. CALCICHEW [Concomitant]
  2. DAPSONE [Concomitant]
  3. MYCOPHENOLATE MOFETIL [Suspect]
     Indication: WEGENER'S GRANULOMATOSIS
     Route: 065
     Dates: start: 20070201
  4. METHOTREXATE [Concomitant]
     Indication: WEGENER'S GRANULOMATOSIS
     Dates: start: 20090601
  5. OMEPRAZOLE [Concomitant]
  6. ENALAPRIL MALEATE [Concomitant]
  7. ONDANSETRON [Concomitant]
  8. SODIUM BICARBONATE [Concomitant]
  9. DOXYCYCLINE [Concomitant]
  10. ALENDRONATE SODIUM [Concomitant]
  11. PREDNISOLONE [Concomitant]
     Dosage: ALTERNATE DAYS
  12. PREDNISOLONE [Concomitant]
  13. WARFARIN SODIUM [Concomitant]
  14. FOLIC ACID [Concomitant]
  15. CANDESARTAN CILEXETIL [Concomitant]

REACTIONS (1)
  - WEGENER'S GRANULOMATOSIS [None]
